FAERS Safety Report 21777356 (Version 1)
Quarter: 2022Q4

REPORT INFORMATION
  Report Type: Report from Study
  Country: US (occurrence: US)
  Receive Date: 20221226
  Receipt Date: 20221226
  Transmission Date: 20230113
  Serious: No
  Sender: FDA-Public Use
  Company Number: US-ABBVIE-4241400

PATIENT
  Age: 65 Year
  Sex: Female
  Weight: 77 kg

DRUGS (1)
  1. HUMIRA [Suspect]
     Active Substance: ADALIMUMAB
     Indication: Ankylosing spondylitis
     Route: 058
     Dates: start: 202209, end: 20221130

REACTIONS (7)
  - Sinus congestion [Recovering/Resolving]
  - Weight increased [Not Recovered/Not Resolved]
  - COVID-19 [Recovering/Resolving]
  - Nasal congestion [Recovering/Resolving]
  - Immunodeficiency [Unknown]
  - Feeling abnormal [Unknown]
  - Pain [Unknown]

NARRATIVE: CASE EVENT DATE: 20221210
